FAERS Safety Report 5159986-2 (Version None)
Quarter: 2006Q4

REPORT INFORMATION
  Report Type: 
  Country: None (occurrence: None)
  Receive Date: 20061129
  Receipt Date: 20060517
  Transmission Date: 20070319
  Serious: No
  Sender: FDA-Public Use
  Company Number: US-GLAXOSMITHKLINE-A0606066A

PATIENT
  Age: 62 Year
  Sex: Female

DRUGS (6)
  1. WELLBUTRIN SR [Suspect]
     Indication: POST-TRAUMATIC STRESS DISORDER
     Dosage: 150MG PER DAY
     Route: 048
     Dates: start: 20000101
  2. EFFEXOR [Concomitant]
  3. HYDROCHLOROTHIAZIDE [Concomitant]
  4. TRAZODONE HCL [Concomitant]
  5. PROTONIX [Concomitant]
  6. LIPITOR [Concomitant]

REACTIONS (1)
  - RASH [None]
